FAERS Safety Report 5884444-7 (Version None)
Quarter: 2008Q3

REPORT INFORMATION
  Report Type: 
  Country: None (occurrence: None)
  Receive Date: 20080915
  Receipt Date: 20080908
  Transmission Date: 20090109
  Serious: Yes (Other)
  Sender: FDA-Public Use
  Company Number: US-PFIZER INC-2008075494

PATIENT
  Sex: Male
  Weight: 79.545 kg

DRUGS (7)
  1. LIPITOR [Suspect]
     Indication: BLOOD CHOLESTEROL INCREASED
  2. CARDURA [Concomitant]
  3. ISORDIL [Concomitant]
  4. ZESTRIL [Concomitant]
  5. ATENOLOL [Concomitant]
  6. ACETYLSALICYLIC ACID SRT [Concomitant]
  7. LASIX [Concomitant]

REACTIONS (4)
  - ILL-DEFINED DISORDER [None]
  - MUSCULAR WEAKNESS [None]
  - MYALGIA [None]
  - SENSATION OF HEAVINESS [None]
